FAERS Safety Report 14874744 (Version 1)
Quarter: 2018Q2

REPORT INFORMATION
  Report Type: Spontaneous
  Country: US (occurrence: US)
  Receive Date: 20180510
  Receipt Date: 20180510
  Transmission Date: 20180711
  Serious: Yes (Other)
  Sender: FDA-Public Use
  Company Number: US-RECKITT BENCKISER HEALTHCARE INT LIMITED-RB-85894-2018

PATIENT
  Age: 48 Year
  Sex: Female

DRUGS (2)
  1. MUCINEX DM MAXIMUM STRENGTH [Suspect]
     Active Substance: DEXTROMETHORPHAN HYDROBROMIDE\GUAIFENESIN
     Indication: NASOPHARYNGITIS
     Dosage: PRN, HALF  A TABLET IN THE MORNING AND THE OTHER HALF AT NIGHT WHEN NEEDED
     Route: 065
     Dates: start: 20180419, end: 20180426
  2. MUCINEX DM MAXIMUM STRENGTH [Suspect]
     Active Substance: DEXTROMETHORPHAN HYDROBROMIDE\GUAIFENESIN
     Indication: COUGH

REACTIONS (6)
  - Nervous system disorder [Unknown]
  - Amnesia [Unknown]
  - Somnolence [Unknown]
  - Wrong technique in product usage process [Unknown]
  - Confusional state [Unknown]
  - Headache [Recovering/Resolving]

NARRATIVE: CASE EVENT DATE: 2018
